FAERS Safety Report 16816558 (Version 1)
Quarter: 2019Q3

REPORT INFORMATION
  Report Type: Spontaneous
  Country: IT (occurrence: IT)
  Receive Date: 20190917
  Receipt Date: 20190917
  Transmission Date: 20191005
  Serious: Yes (Other)
  Sender: FDA-Public Use
  Company Number: PHHY2019IT213923

PATIENT
  Age: 78 Year
  Sex: Male

DRUGS (3)
  1. OXALIPLATIN. [Suspect]
     Active Substance: OXALIPLATIN
     Indication: GASTROINTESTINAL NEOPLASM
     Dosage: UNK, (6 CYCLES)
     Route: 065
  2. FLUOROURACIL. [Concomitant]
     Active Substance: FLUOROURACIL
     Indication: GASTROINTESTINAL NEOPLASM
     Dosage: UNK, (6 CYCLES)
     Route: 065
  3. LEUCOVORIN CALCIUM. [Concomitant]
     Active Substance: LEUCOVORIN CALCIUM
     Indication: GASTROINTESTINAL NEOPLASM
     Dosage: UNK, (6 CYCLES)
     Route: 065

REACTIONS (8)
  - Non-cirrhotic portal hypertension [Unknown]
  - Liver disorder [Unknown]
  - Portal vein thrombosis [Unknown]
  - Splenic vein thrombosis [Unknown]
  - Vein disorder [Unknown]
  - Portal shunt [Unknown]
  - Oesophageal varices haemorrhage [Unknown]
  - Product use in unapproved indication [Unknown]
